FAERS Safety Report 5372885-6 (Version None)
Quarter: 2007Q2

REPORT INFORMATION
  Report Type: 
  Country: None (occurrence: None)
  Receive Date: 20070621
  Receipt Date: 20070411
  Transmission Date: 20071010
  Serious: No
  Sender: FDA-Public Use
  Company Number: US-CVT-070084

PATIENT
  Age: 47 Year
  Sex: Male

DRUGS (6)
  1. RANEXA [Suspect]
     Indication: ANGINA PECTORIS
     Dosage: 500 MG, BID, ORAL
     Route: 048
     Dates: start: 20070322
  2. PLAVIX [Concomitant]
  3. ZIAC [Concomitant]
  4. ZETIA [Concomitant]
  5. SIMVASTATIN [Concomitant]
  6. WELLBUTRIN [Concomitant]

REACTIONS (1)
  - RASH [None]
